FAERS Safety Report 7726692-7 (Version None)
Quarter: 2011Q3

REPORT INFORMATION
  Report Type: 
  Country: None (occurrence: None)
  Receive Date: 20110902
  Receipt Date: 20110902
  Transmission Date: 20111222
  Serious: Yes (Death)
  Sender: FDA-Public Use
  Company Number: None

PATIENT
  Age: 85 Year
  Sex: Male
  Weight: 78.017 kg

DRUGS (1)
  1. RITUXIMAB [Suspect]
     Indication: LYMPHOMA
     Dates: start: 20110220, end: 20110710

REACTIONS (5)
  - DIARRHOEA [None]
  - FLATULENCE [None]
  - HEPATITIS B [None]
  - CLOSTRIDIUM TEST POSITIVE [None]
  - HERPES ZOSTER [None]
